FAERS Safety Report 9988796 (Version 3)
Quarter: 2013Q4

REPORT INFORMATION
  Report Type: Spontaneous
  Country: DE (occurrence: None)
  Receive Date: 20131018
  Receipt Date: 20131212
  Transmission Date: 20140711
  Serious: Yes (Disabling)
  Sender: FDA-Public Use
  Company Number: 1310-1290

PATIENT
  Age: 83 Year
  Sex: Female

DRUGS (6)
  1. EYLEA [Suspect]
     Indication: AGE-RELATED MACULAR DEGENERATION
     Route: 031
     Dates: start: 20130911
  2. L-CARTIN (LEVOCARNITINE HYDROCHLORIDE) [Concomitant]
  3. URSODEOXYCHOLIC ACID (URSODEOXYCHOLIC ACID) UNKNOWN) [Concomitant]
  4. AMINOVACT (FALKAMIN) [Concomitant]
  5. SHAKUYAKUKANZOTO (SHAKUYAKUKANZOTO) [Concomitant]
  6. FAMOSTAGINE-D (FAMOTIDINE) [Concomitant]

REACTIONS (2)
  - Vitreous haemorrhage [None]
  - Subretinal haematoma [None]
